FAERS Safety Report 14819504 (Version 1)
Quarter: 2018Q2

REPORT INFORMATION
  Report Type: Spontaneous
  Country: US (occurrence: US)
  Receive Date: 20180427
  Receipt Date: 20180427
  Transmission Date: 20180711
  Serious: No
  Sender: FDA-Public Use
  Company Number: US-BAYER-2018-079010

PATIENT
  Sex: Female
  Weight: 90.98 kg

DRUGS (3)
  1. MIRALAX [Suspect]
     Active Substance: POLYETHYLENE GLYCOL 3350
     Indication: COLONOSCOPY
     Dosage: UNK
     Dates: start: 2016, end: 2016
  2. MIRALAX [Suspect]
     Active Substance: POLYETHYLENE GLYCOL 3350
     Indication: IRRITABLE BOWEL SYNDROME
  3. MIRALAX [Suspect]
     Active Substance: POLYETHYLENE GLYCOL 3350
     Indication: GASTROINTESTINAL DISORDER
     Dosage: 17 G, UNK
     Route: 048
     Dates: start: 201804

REACTIONS (5)
  - Product use in unapproved indication [Unknown]
  - Off label use [Unknown]
  - Product use in unapproved indication [Unknown]
  - Product prescribing issue [None]
  - Off label use [Unknown]

NARRATIVE: CASE EVENT DATE: 2016
